FAERS Safety Report 8532887-5 (Version None)
Quarter: 2012Q3

REPORT INFORMATION
  Report Type: 
  Country: None (occurrence: None)
  Receive Date: 20120724
  Receipt Date: 20120712
  Transmission Date: 20120928
  Serious: Yes (Hospitalization)
  Sender: FDA-Public Use
  Company Number: US-VERTEX PHARMACEUTICALS INC.-AE-2012-010381

PATIENT
  Sex: Female

DRUGS (5)
  1. INCIVEK [Suspect]
     Indication: HEPATITIS C
     Route: 048
     Dates: start: 20120401, end: 20120622
  2. INCIVEK [Suspect]
     Route: 048
     Dates: start: 20120624, end: 20120626
  3. COPEGUS [Concomitant]
     Indication: HEPATITIS C
     Route: 048
     Dates: start: 20120401
  4. INCIVEK [Suspect]
     Route: 048
     Dates: end: 20120706
  5. PEGASYS [Concomitant]
     Indication: HEPATITIS C
     Dates: start: 20120401

REACTIONS (1)
  - WHITE BLOOD CELL COUNT DECREASED [None]
